FAERS Safety Report 23326273 (Version 1)
Quarter: 2023Q4

REPORT INFORMATION
  Report Type: Spontaneous
  Country: US (occurrence: None)
  Receive Date: 20231220
  Receipt Date: 20231220
  Transmission Date: 20240109
  Serious: No
  Sender: FDA-Public Use
  Company Number: None

PATIENT
  Sex: Male

DRUGS (9)
  1. DEXMETHYLPHENIDATE HYDROCHLORIDE [Suspect]
     Active Substance: DEXMETHYLPHENIDATE HYDROCHLORIDE
  2. methylphendate ER [Concomitant]
  3. METHYLPHENIDATE [Concomitant]
     Active Substance: METHYLPHENIDATE
  4. ADDERALL [Concomitant]
     Active Substance: AMPHETAMINE ASPARTATE\AMPHETAMINE SULFATE\DEXTROAMPHETAMINE SACCHARATE\DEXTROAMPHETAMINE SULFATE
  5. VYVANSE [Concomitant]
     Active Substance: LISDEXAMFETAMINE DIMESYLATE
  6. dextroamphetamine (dextrostat) [Concomitant]
  7. GUANFACINE [Concomitant]
     Active Substance: GUANFACINE
  8. ATOMOXETINE [Concomitant]
     Active Substance: ATOMOXETINE
  9. BUPROPION [Concomitant]
     Active Substance: BUPROPION

REACTIONS (2)
  - Drug ineffective [None]
  - Insurance issue [None]
